FAERS Safety Report 8417924-0 (Version None)
Quarter: 2012Q2

REPORT INFORMATION
  Report Type: 
  Country: None (occurrence: None)
  Receive Date: 20120601
  Receipt Date: 20120601
  Transmission Date: 20120825
  Serious: Yes (Death)
  Sender: FDA-Public Use
  Company Number: None

PATIENT
  Age: 65 Year
  Sex: Male
  Weight: 108.8633 kg

DRUGS (2)
  1. AMIODARONE HCL [Suspect]
     Indication: ATRIAL FIBRILLATION
     Dosage: 3X A DAY FOR 1 DAY PO
     Route: 048
     Dates: start: 20120113, end: 20120123
  2. METOPROLOL SUCCINATE [Suspect]
     Dosage: 2 TWICE DAILY FOR 1 WEEK 50MG BID PO
     Route: 048

REACTIONS (1)
  - PULMONARY FIBROSIS [None]
